FAERS Safety Report 9285135 (Version 1)
Quarter: 2013Q2

REPORT INFORMATION
  Report Type: Spontaneous
  Country: CO (occurrence: CO)
  Receive Date: 20130513
  Receipt Date: 20130513
  Transmission Date: 20140414
  Serious: Yes (Other)
  Sender: FDA-Public Use
  Company Number: CO-AMGEN-COLSP2013032896

PATIENT
  Age: 60 Year
  Sex: Female

DRUGS (4)
  1. ENBREL [Suspect]
     Indication: PSORIATIC ARTHROPATHY
     Dosage: 25 MG, 2X/WEEK
     Route: 058
     Dates: start: 201208, end: 20130301
  2. ENBREL [Suspect]
     Dosage: 25 MG, 2X/WEEK
     Route: 058
     Dates: start: 20130404
  3. DERMOVATE [Concomitant]
     Indication: PSORIATIC ARTHROPATHY
     Dosage: UNK UNK, QD
     Route: 061
     Dates: start: 2009
  4. EMOLLIENTS AND PROTECTIVES [Concomitant]
     Indication: PSORIATIC ARTHROPATHY
     Dosage: UNK UNK, BID
     Route: 061
     Dates: start: 2012

REACTIONS (4)
  - Rhabdomyoma [Recovered/Resolved]
  - Speech disorder [Recovered/Resolved]
  - Dyspnoea [Recovered/Resolved]
  - Cardiac disorder [Unknown]
